FAERS Safety Report 7489342-3 (Version None)
Quarter: 2011Q2

REPORT INFORMATION
  Report Type: 
  Country: None (occurrence: None)
  Receive Date: 20110518
  Receipt Date: 20110505
  Transmission Date: 20111010
  Serious: Yes (Other)
  Sender: FDA-Public Use
  Company Number: US-ELI_LILLY_AND_COMPANY-US201105003055

PATIENT
  Sex: Female

DRUGS (12)
  1. ADVAIR DISKUS 100/50 [Concomitant]
  2. FORTEO [Suspect]
     Indication: OSTEOPOROSIS
     Dosage: 20 UG, QD
     Route: 065
     Dates: start: 20110101
  3. MEDROL [Concomitant]
     Dosage: 4 MG, QD
  4. MULTI-VITAMIN [Concomitant]
  5. NEXIUM [Concomitant]
     Dosage: 40 MG, QD
  6. CARDIZEM CD [Concomitant]
     Indication: BLOOD PRESSURE
     Dosage: 360 MG, QD
  7. CALCIUM W/VITAMIN D                /00188401/ [Concomitant]
  8. FORTEO [Suspect]
     Dosage: 20 UG, QD
     Route: 065
     Dates: start: 20110401
  9. DIOVAN [Concomitant]
     Dosage: 160 MG, QD
  10. DUONEB [Concomitant]
  11. ZOLOFT [Concomitant]
     Dosage: 100 MG, QD
  12. VITAMIN D [Concomitant]
     Dosage: 1000 IU, UNK

REACTIONS (9)
  - MEDICATION ERROR [None]
  - BLOOD CHOLESTEROL INCREASED [None]
  - BACK PAIN [None]
  - MALAISE [None]
  - PAIN IN EXTREMITY [None]
  - PAIN [None]
  - SPINAL FRACTURE [None]
  - FATIGUE [None]
  - VITAMIN D DECREASED [None]
